FAERS Safety Report 4815004-4 (Version None)
Quarter: 2005Q4

REPORT INFORMATION
  Report Type: 
  Country: None (occurrence: None)
  Receive Date: 20051026
  Receipt Date: 20051006
  Transmission Date: 20060501
  Serious: Yes (Other)
  Sender: FDA-Public Use
  Company Number: GBS051018679

PATIENT
  Age: 11 Year
  Weight: 30 kg

DRUGS (2)
  1. FLUOXETINE [Suspect]
     Indication: OBSESSIVE-COMPULSIVE DISORDER
     Dosage: 20 MG
     Dates: start: 20050715, end: 20050905
  2. CLONAZEPAM [Concomitant]

REACTIONS (7)
  - AGGRESSION [None]
  - IMPULSIVE BEHAVIOUR [None]
  - IRRITABILITY [None]
  - NEGATIVISM [None]
  - PRURITUS [None]
  - SCRATCH [None]
  - SELF INJURIOUS BEHAVIOUR [None]
